FAERS Safety Report 11878685 (Version 1)
Quarter: 2015Q4

REPORT INFORMATION
  Report Type: Spontaneous
  Country: RS (occurrence: RS)
  Receive Date: 20151230
  Receipt Date: 20151230
  Transmission Date: 20160305
  Serious: Yes (Hospitalization)
  Sender: FDA-Public Use
  Company Number: RS-PFIZER INC-2015464485

PATIENT
  Age: 68 Year
  Sex: Male

DRUGS (4)
  1. SUTENT [Suspect]
     Active Substance: SUNITINIB MALATE
     Indication: METASTATIC RENAL CELL CARCINOMA
     Dosage: 50 MG, DAILY
     Dates: start: 201505
  2. LOPERAMID [Concomitant]
     Active Substance: LOPERAMIDE
  3. MEGACE [Concomitant]
     Active Substance: MEGESTROL ACETATE
  4. OMEPROL [Concomitant]
     Active Substance: OMEPRAZOLE

REACTIONS (2)
  - Thrombocytopenia [Recovering/Resolving]
  - Malaise [Recovering/Resolving]

NARRATIVE: CASE EVENT DATE: 20151207
